FAERS Safety Report 5846161-9 (Version None)
Quarter: 2008Q3

REPORT INFORMATION
  Report Type: 
  Country: None (occurrence: None)
  Receive Date: 20080814
  Receipt Date: 20080805
  Transmission Date: 20090109
  Serious: Yes (Other)
  Sender: FDA-Public Use
  Company Number: JP-PFIZER INC-2008066317

PATIENT
  Age: 67 Year
  Sex: Female

DRUGS (5)
  1. SALAZOPYRIN [Suspect]
     Indication: COLITIS ULCERATIVE
     Dosage: DAILY DOSE:3GRAM-FREQ:DAILY
     Route: 048
     Dates: start: 20080527, end: 20080605
  2. NORVASC [Concomitant]
     Dosage: DAILY DOSE:5MG-FREQ:DAILY
     Route: 048
  3. BUFFERIN [Concomitant]
     Route: 048
  4. AZULENE [Concomitant]
     Route: 048
  5. TRIAZOLAM [Concomitant]
     Dosage: DAILY DOSE:.25MG-FREQ:DAILY
     Route: 048

REACTIONS (1)
  - ECZEMA [None]
